FAERS Safety Report 5382845-7 (Version None)
Quarter: 2007Q3

REPORT INFORMATION
  Report Type: 
  Country: None (occurrence: None)
  Receive Date: 20070710
  Receipt Date: 20070702
  Transmission Date: 20080115
  Serious: Yes (Other)
  Sender: FDA-Public Use
  Company Number: US-AMGEN-US230960

PATIENT
  Sex: Female

DRUGS (2)
  1. ENBREL [Suspect]
     Indication: PSORIASIS
     Route: 058
     Dates: start: 20040401
  2. PREDNISONE TAB [Suspect]
     Route: 065

REACTIONS (3)
  - INTERVERTEBRAL DISC INJURY [None]
  - PSORIASIS [None]
  - VISION BLURRED [None]
